FAERS Safety Report 6814962-6 (Version None)
Quarter: 2010Q3

REPORT INFORMATION
  Report Type: 
  Country: None (occurrence: None)
  Receive Date: 20100702
  Receipt Date: 20100625
  Transmission Date: 20110219
  Serious: Yes (Other)
  Sender: FDA-Public Use
  Company Number: GB-MILLENNIUM PHARMACEUTICALS, INC.-2010-02653

PATIENT

DRUGS (7)
  1. VELCADE [Suspect]
     Indication: MULTIPLE MYELOMA
     Dosage: 2.2 MG, CYCLIC
     Route: 042
     Dates: start: 20100125
  2. VELCADE [Suspect]
     Dosage: 1.7 MG, CYCLIC
     Route: 042
     Dates: end: 20100422
  3. DOMPERIDONE [Concomitant]
     Indication: PROPHYLAXIS OF NAUSEA AND VOMITING
     Dosage: 20 MG, QID
     Route: 048
     Dates: start: 20100125, end: 20100422
  4. ALLOPURINOL [Concomitant]
     Indication: PROPHYLAXIS
     Dosage: 300 MG, QD
     Dates: start: 20100125, end: 20100422
  5. ACYCLOVIR [Concomitant]
     Indication: ANTIVIRAL PROPHYLAXIS
     Dosage: 400 MG, BID
     Dates: start: 20100125
  6. NYSTATIN [Concomitant]
     Indication: ANTIFUNGAL PROPHYLAXIS
     Dosage: 1 ML, QID
     Route: 048
     Dates: start: 20100125, end: 20100422
  7. ZOLEDRONIC ACID [Concomitant]
     Dosage: 4 MG, UNK
     Route: 042

REACTIONS (3)
  - DRUG INEFFECTIVE [None]
  - MALAISE [None]
  - NEUROPATHY PERIPHERAL [None]
